FAERS Safety Report 8159121-2 (Version None)
Quarter: 2012Q1

REPORT INFORMATION
  Report Type: 
  Country: None (occurrence: None)
  Receive Date: 20120217
  Receipt Date: 20120206
  Transmission Date: 20120608
  Serious: Yes (Other)
  Sender: FDA-Public Use
  Company Number: 2012P1004173

PATIENT
  Age: 44 Year
  Sex: Male

DRUGS (1)
  1. MORPHINE [Suspect]
     Indication: COMPLEX REGIONAL PAIN SYNDROME
     Dosage: 1.7928; 1.493 MG, Q24H, INTH
     Route: 037

REACTIONS (1)
  - HICCUPS [None]
